FAERS Safety Report 6333111-4 (Version None)
Quarter: 2009Q3

REPORT INFORMATION
  Report Type: 
  Country: None (occurrence: None)
  Receive Date: 20090828
  Receipt Date: 20090820
  Transmission Date: 20100115
  Serious: Yes (Other)
  Sender: FDA-Public Use
  Company Number: US-AVENTIS-200915350US

PATIENT
  Sex: Male

DRUGS (5)
  1. LANTUS [Suspect]
     Route: 058
  2. LANTUS [Suspect]
     Route: 058
  3. GLYBURIDE [Suspect]
  4. METFORMIN HCL [Concomitant]
     Dosage: DOSE: UNK
  5. UNKNOWN DRUG [Concomitant]
     Dosage: DOSE: UNK

REACTIONS (7)
  - BLOOD GLUCOSE DECREASED [None]
  - BLOOD GLUCOSE INCREASED [None]
  - CENTRAL OBESITY [None]
  - GLYCOSYLATED HAEMOGLOBIN INCREASED [None]
  - INJECTION SITE HAEMATOMA [None]
  - INJECTION SITE PAIN [None]
  - WEIGHT INCREASED [None]
